FAERS Safety Report 19363298 (Version 1)
Quarter: 2021Q2

REPORT INFORMATION
  Report Type: Spontaneous
  Country: US (occurrence: US)
  Receive Date: 20210603
  Receipt Date: 20210603
  Transmission Date: 20210717
  Serious: No
  Sender: FDA-Public Use
  Company Number: US-ELI_LILLY_AND_COMPANY-US202105002952

PATIENT
  Age: 67 Year
  Sex: Male

DRUGS (2)
  1. EMGALITY [Suspect]
     Active Substance: GALCANEZUMAB-GNLM
     Indication: MIGRAINE
     Dosage: 120 MG, OTHER EVERY 28 DAYS
     Route: 065
     Dates: start: 20210422
  2. EMGALITY [Suspect]
     Active Substance: GALCANEZUMAB-GNLM
     Indication: CLUSTER HEADACHE
     Dosage: 240 MG, SINGLE
     Route: 065
     Dates: start: 20210326

REACTIONS (3)
  - Inappropriate schedule of product administration [Unknown]
  - Prescribed underdose [Unknown]
  - Migraine [Unknown]

NARRATIVE: CASE EVENT DATE: 20210326
